FAERS Safety Report 9653190 (Version 2)
Quarter: 2013Q4

REPORT INFORMATION
  Report Type: Spontaneous
  Country: PE (occurrence: PE)
  Receive Date: 20131029
  Receipt Date: 20131125
  Transmission Date: 20140711
  Serious: Yes (Death)
  Sender: FDA-Public Use
  Company Number: PE-PFIZER INC-2013307289

PATIENT
  Age: 50 Year
  Sex: Female

DRUGS (1)
  1. LYRICA [Suspect]
     Indication: CANCER PAIN
     Dosage: 75 MG, 2X/DAY
     Route: 048
     Dates: start: 201306, end: 201308

REACTIONS (2)
  - Malignant neoplasm progression [Fatal]
  - Disease progression [Fatal]
